FAERS Safety Report 6470940-0 (Version None)
Quarter: 2009Q4

REPORT INFORMATION
  Report Type: 
  Country: None (occurrence: None)
  Receive Date: 20091203
  Receipt Date: 20080104
  Transmission Date: 20100525
  Serious: Yes (Other)
  Sender: FDA-Public Use
  Company Number: US-ELI_LILLY_AND_COMPANY-US200801000254

PATIENT
  Age: 25 Year
  Sex: Male

DRUGS (7)
  1. OLANZAPINE [Suspect]
     Dosage: 10 MG, UNK
     Route: 048
  2. OLANZAPINE [Suspect]
     Dosage: 20 MG, 2/D
     Route: 048
  3. OLANZAPINE [Suspect]
     Dosage: 40 MG, UNK
     Route: 048
  4. OLANZAPINE [Suspect]
     Dosage: UNK MG, UNK
     Route: 048
  5. ALCOHOL [Concomitant]
  6. COCAINE [Concomitant]
  7. BENZODIAZEPINE DERIVATIVES [Concomitant]

REACTIONS (7)
  - ANXIETY [None]
  - DRUG ABUSE [None]
  - EUPHORIC MOOD [None]
  - FEELING JITTERY [None]
  - INTENTIONAL OVERDOSE [None]
  - OVERDOSE [None]
  - SEDATION [None]
